FAERS Safety Report 18099922 (Version 1)
Quarter: 2020Q3

REPORT INFORMATION
  Report Type: Report from Study
  Country: HN (occurrence: HN)
  Receive Date: 20200731
  Receipt Date: 20200731
  Transmission Date: 20201103
  Serious: Yes (Other)
  Sender: FDA-Public Use
  Company Number: NVSC2020HN208457

PATIENT
  Age: 86 Year
  Sex: Female

DRUGS (4)
  1. VYMADA [Suspect]
     Active Substance: SACUBITRIL\VALSARTAN
     Dosage: 200 MG
     Route: 065
  2. VYMADA [Suspect]
     Active Substance: SACUBITRIL\VALSARTAN
     Indication: PRODUCT USED FOR UNKNOWN INDICATION
     Dosage: 50 MG (3 YEARS AGO, PATIENT CONSUMED IT FOR 4 MONTHS)
     Route: 065
  3. VYMADA [Suspect]
     Active Substance: SACUBITRIL\VALSARTAN
     Dosage: 100 MG
     Route: 065
     Dates: start: 201911
  4. VYMADA [Suspect]
     Active Substance: SACUBITRIL\VALSARTAN
     Dosage: 150 MG
     Route: 065

REACTIONS (3)
  - Emphysema [Unknown]
  - Acute respiratory failure [Unknown]
  - Dyspnoea [Unknown]
